FAERS Safety Report 8976059 (Version 1)
Quarter: 2012Q4

REPORT INFORMATION
  Report Type: Report from Study
  Country: CA (occurrence: CA)
  Receive Date: 20121219
  Receipt Date: 20121219
  Transmission Date: 20130627
  Serious: Yes (Other)
  Sender: FDA-Public Use
  Company Number: CA-ROCHE-1170770

PATIENT
  Sex: Female

DRUGS (7)
  1. XOLAIR [Suspect]
     Indication: ASTHMA
     Route: 058
  2. PULMICORT [Concomitant]
  3. VENTOLIN [Concomitant]
  4. OXEZE [Concomitant]
  5. ELTROXIN [Concomitant]
  6. MULTIVITAMINS NOS [Concomitant]
  7. PREDNISONE [Concomitant]

REACTIONS (6)
  - Blood glucose increased [Unknown]
  - Vision blurred [Unknown]
  - Bone pain [Unknown]
  - Influenza like illness [Not Recovered/Not Resolved]
  - Fatigue [Unknown]
  - Headache [Unknown]
